FAERS Safety Report 9468084 (Version 2)
Quarter: 2014Q3

REPORT INFORMATION
  Report Type: Spontaneous
  Country: US (occurrence: US)
  Receive Date: 20130821
  Receipt Date: 20140919
  Transmission Date: 20150326
  Serious: Yes (Life-Threatening, Hospitalization, Congenital Anomaly, Other)
  Sender: FDA-Public Use
  Company Number: US-ELI_LILLY_AND_COMPANY-US201308004496

PATIENT
  Age: 1 Month

DRUGS (8)
  1. ASA [Concomitant]
     Active Substance: ASPIRIN
     Dosage: 81 MG, QD
     Route: 064
  2. CYMBALTA [Suspect]
     Active Substance: DULOXETINE HYDROCHLORIDE
     Dosage: UNK
     Route: 065
  3. PRENATAL VITAMINS                  /01549301/ [Concomitant]
     Active Substance: VITAMINS
     Route: 064
  4. CYMBALTA [Suspect]
     Active Substance: DULOXETINE HYDROCHLORIDE
     Dosage: UNK
     Route: 065
  5. FOLIC ACID. [Concomitant]
     Active Substance: FOLIC ACID
     Dosage: UNK
     Route: 064
  6. FOLIC ACID. [Concomitant]
     Active Substance: FOLIC ACID
     Dosage: UNK
     Route: 064
  7. PRENATAL VITAMINS                  /01549301/ [Concomitant]
     Active Substance: VITAMINS
     Route: 064
  8. ASA [Concomitant]
     Active Substance: ASPIRIN
     Dosage: 81 MG, QD
     Route: 064

REACTIONS (12)
  - Single umbilical artery [Recovered/Resolved]
  - Congenital pulmonary artery anomaly [Unknown]
  - Weight gain poor [Recovered/Resolved]
  - Atrial septal defect [Unknown]
  - Cardiomegaly [Unknown]
  - Haemodynamic instability [Recovered/Resolved]
  - Congenital tricuspid valve incompetence [Unknown]
  - Foetal exposure during pregnancy [Recovered/Resolved]
  - Cardiac failure congestive [Unknown]
  - Ventricular septal defect [Unknown]
  - Hypoplastic right heart syndrome [Unknown]
  - Anaemia [Recovered/Resolved]

NARRATIVE: CASE EVENT DATE: 20081106
